FAERS Safety Report 23700322 (Version 1)
Quarter: 2024Q2

REPORT INFORMATION
  Report Type: Spontaneous
  Country: US (occurrence: US)
  Receive Date: 20240403
  Receipt Date: 20240403
  Transmission Date: 20240716
  Serious: No
  Sender: FDA-Public Use
  Company Number: US-PADAGIS-2024PAD00468

PATIENT

DRUGS (3)
  1. DEXAMETHASONE\NEOMYCIN\POLYMYXIN B SULFATE [Suspect]
     Active Substance: DEXAMETHASONE\NEOMYCIN\POLYMYXIN B SULFATE
     Indication: Corneal lesion
     Dosage: UNK NEOMYCIN 3.5 MG/POLYMYXIN B 10,000 U/DEXAMETHASONE 0.1% C
     Route: 061
  2. KETOTIFEN [Concomitant]
     Active Substance: KETOTIFEN
     Indication: Corneal lesion
     Dosage: UNK 0.025%
     Route: 061
  3. OLOPATADINE [Concomitant]
     Active Substance: OLOPATADINE
     Indication: Corneal lesion
     Dosage: UNK 0.2%
     Route: 061

REACTIONS (2)
  - Intraocular pressure increased [Unknown]
  - Product use in unapproved indication [Unknown]
